FAERS Safety Report 7934231-0 (Version None)
Quarter: 2011Q4

REPORT INFORMATION
  Report Type: 
  Country: None (occurrence: None)
  Receive Date: 20111122
  Receipt Date: 20110819
  Transmission Date: 20120403
  Serious: No
  Sender: FDA-Public Use
  Company Number: US-BAYER-2011-078672

PATIENT
  Age: 78 Year
  Sex: Female
  Weight: 110 kg

DRUGS (7)
  1. VITAMIN B-12 [Concomitant]
  2. LIPITOR [Concomitant]
  3. DYAZIDE [Concomitant]
  4. LOVAZA [Concomitant]
  5. MULTIVITAMIN PREPARATION + MINERAL SUPPLEMENT [Concomitant]
  6. LISINOPRIL [Concomitant]
  7. ALEVE (CAPLET) [Suspect]
     Indication: ARTHRITIS
     Dosage: 1 DF, BID
     Dates: start: 20110809, end: 20110822

REACTIONS (1)
  - PRURITUS [None]
